FAERS Safety Report 16482728 (Version 6)
Quarter: 2019Q3

REPORT INFORMATION
  Report Type: Report from Study
  Country: US (occurrence: US)
  Receive Date: 20190627
  Receipt Date: 20190930
  Transmission Date: 20191004
  Serious: Yes (Hospitalization)
  Sender: FDA-Public Use
  Company Number: PHHO2019US006715

PATIENT
  Age: 2 Year
  Sex: Male

DRUGS (9)
  1. PEGASPARGASE [Suspect]
     Active Substance: PEGASPARGASE
     Indication: ACUTE LYMPHOCYTIC LEUKAEMIA
     Dosage: 1350 MG, ONCE/SINGLE
     Route: 042
     Dates: start: 20190525
  2. METHOTREXATE. [Suspect]
     Active Substance: METHOTREXATE
     Indication: ACUTE LYMPHOCYTIC LEUKAEMIA
     Dosage: 110 MG, ONCE/SINGLE
     Route: 042
     Dates: start: 20190603
  3. METHOTREXATE. [Suspect]
     Active Substance: METHOTREXATE
     Dosage: 110 MG, ONCE/SINGLE
     Route: 042
     Dates: end: 20190613
  4. VINCRISTINE [Suspect]
     Active Substance: VINCRISTINE
     Indication: ACUTE LYMPHOCYTIC LEUKAEMIA
     Dosage: 0.83 MG, QD
     Route: 042
     Dates: start: 20190524, end: 20190603
  5. INC424A [Suspect]
     Active Substance: RUXOLITINIB
     Dosage: 25 MG, BID
     Route: 048
     Dates: end: 20190613
  6. GRANISETRON HCL [Concomitant]
     Indication: NAUSEA
     Dosage: 0.5 MG, BID
     Route: 048
     Dates: start: 20190514
  7. BACTRIM [Concomitant]
     Active Substance: SULFAMETHOXAZOLE\TRIMETHOPRIM
     Indication: PROPHYLAXIS
     Dosage: 40 MG, BIW
     Route: 065
     Dates: start: 20180728
  8. INC424A [Suspect]
     Active Substance: RUXOLITINIB
     Indication: ACUTE LYMPHOCYTIC LEUKAEMIA
     Dosage: 25 MG, BID
     Route: 048
     Dates: start: 20190524, end: 20190602
  9. URSODIOL. [Concomitant]
     Active Substance: URSODIOL
     Indication: VENOOCCLUSIVE LIVER DISEASE
     Dosage: 132 MG, BID
     Route: 048
     Dates: start: 20190315

REACTIONS (5)
  - Blood bilirubin increased [Recovered/Resolved]
  - Dehydration [Recovered/Resolved]
  - Mucosal inflammation [Recovered/Resolved]
  - Hypoglycaemia [Recovered/Resolved]
  - Alanine aminotransferase increased [Recovered/Resolved]

NARRATIVE: CASE EVENT DATE: 20190609
